FAERS Safety Report 15832152 (Version 1)
Quarter: 2019Q1

REPORT INFORMATION
  Report Type: Spontaneous
  Country: ES (occurrence: ES)
  Receive Date: 20190116
  Receipt Date: 20190116
  Transmission Date: 20190417
  Serious: Yes (Other)
  Sender: FDA-Public Use
  Company Number: ES-LUPIN PHARMACEUTICALS INC.-2019-00089

PATIENT
  Age: 82 Year
  Sex: Female

DRUGS (4)
  1. TOBRAMYCIN. [Concomitant]
     Active Substance: TOBRAMYCIN
     Indication: EYE IRRITATION
  2. DICLOFENAC [Suspect]
     Active Substance: DICLOFENAC
     Indication: EYE IRRITATION
  3. TOBRAMYCIN. [Concomitant]
     Active Substance: TOBRAMYCIN
     Indication: OCULAR HYPERAEMIA
     Dosage: UNK
     Route: 065
  4. DICLOFENAC [Suspect]
     Active Substance: DICLOFENAC
     Indication: OCULAR HYPERAEMIA
     Dosage: UNK
     Route: 061

REACTIONS (7)
  - Vision blurred [Unknown]
  - Conjunctival hyperaemia [Recovering/Resolving]
  - Corneal thinning [Recovering/Resolving]
  - Eye pain [Unknown]
  - Ulcerative keratitis [Unknown]
  - Corneal epithelium defect [Unknown]
  - Impaired healing [Unknown]
